FAERS Safety Report 8014286-8 (Version None)
Quarter: 2011Q4

REPORT INFORMATION
  Report Type: 
  Country: None (occurrence: None)
  Receive Date: 20111229
  Receipt Date: 20111221
  Transmission Date: 20120403
  Serious: Yes (Hospitalization)
  Sender: FDA-Public Use
  Company Number: SE-GLAXOSMITHKLINE-B0771809A

PATIENT
  Sex: Male

DRUGS (10)
  1. VOTRIENT [Suspect]
     Indication: RENAL CANCER
     Dosage: 800MG PER DAY
     Route: 048
     Dates: start: 20110822, end: 20111012
  2. SPIRONOLACTONE [Concomitant]
  3. OMEPRAZOLE [Concomitant]
  4. HYDROXOCOBALAMIN [Concomitant]
  5. POTASSIUM CHLORIDE [Concomitant]
  6. ALFUZOSIN HCL [Concomitant]
     Dosage: 10MG PER DAY
  7. ACETYLCYSTEINE [Concomitant]
  8. SYNALAR [Concomitant]
  9. SYMBICORT [Concomitant]
  10. SIMVASTATIN [Concomitant]

REACTIONS (3)
  - JAUNDICE [None]
  - BLOOD ALKALINE PHOSPHATASE INCREASED [None]
  - TRANSAMINASES INCREASED [None]
